FAERS Safety Report 6801106-X (Version None)
Quarter: 2010Q2

REPORT INFORMATION
  Report Type: 
  Country: None (occurrence: None)
  Receive Date: 20100624
  Receipt Date: 20100617
  Transmission Date: 20101027
  Serious: Yes (Hospitalization, Other)
  Sender: FDA-Public Use
  Company Number: 8054000

PATIENT
  Sex: Female
  Weight: 60.1 kg

DRUGS (6)
  1. CERTOLIZUMAB PEGOL (CERTOLIZUMAB PEGOL) [Suspect]
     Indication: RHEUMATOID ARTHRITIS
     Dosage: (400 MG 1X/2 WEEKS SUBCUTANEOUS), (200 MG 1X/2 WEEKS SUBCUTANEOUS),
     Route: 058
     Dates: start: 20051019, end: 20080219
  2. CERTOLIZUMAB PEGOL (CERTOLIZUMAB PEGOL) [Suspect]
     Indication: RHEUMATOID ARTHRITIS
     Dosage: (400 MG 1X/2 WEEKS SUBCUTANEOUS), (200 MG 1X/2 WEEKS SUBCUTANEOUS),
     Route: 058
     Dates: start: 20080220, end: 20091030
  3. CERTOLIZUMAB PEGOL (CERTOLIZUMAB PEGOL) [Suspect]
     Indication: RHEUMATOID ARTHRITIS
     Dosage: (400 MG 1X/2 WEEKS SUBCUTANEOUS), (200 MG 1X/2 WEEKS SUBCUTANEOUS),
     Route: 058
     Dates: start: 20091125
  4. METHOTREXATE [Concomitant]
  5. FOLIC ACID [Concomitant]
  6. NIMESIL [Concomitant]

REACTIONS (8)
  - BACTERIAL TEST POSITIVE [None]
  - CHRONIC OBSTRUCTIVE PULMONARY DISEASE [None]
  - HAEMOGLOBIN DECREASED [None]
  - INFLUENZA [None]
  - NASOPHARYNGITIS [None]
  - PLEURISY [None]
  - PNEUMONIA [None]
  - STAPHYLOCOCCUS TEST POSITIVE [None]
